FAERS Safety Report 12472545 (Version 1)
Quarter: 2016Q2

REPORT INFORMATION
  Report Type: Spontaneous
  Country: None (occurrence: US)
  Receive Date: 20160616
  Receipt Date: 20160616
  Transmission Date: 20160815
  Serious: Yes (Other)
  Sender: FDA-Public Use
  Company Number: US-PRESTIGE BRANDS -1053868

PATIENT
  Age: 68 Year
  Sex: Male

DRUGS (1)
  1. NOSTRILLA [Suspect]
     Active Substance: OXYMETAZOLINE HYDROCHLORIDE
     Indication: NASAL DECONGESTION THERAPY
     Route: 045

REACTIONS (1)
  - Dependence [Not Recovered/Not Resolved]
